FAERS Safety Report 4614667-6 (Version None)
Quarter: 2005Q2

REPORT INFORMATION
  Report Type: 
  Country: None (occurrence: None)
  Receive Date: 20050311
  Receipt Date: 20050118
  Transmission Date: 20051028
  Serious: No
  Sender: FDA-Public Use
  Company Number: 2005-BP-00815BP

PATIENT
  Sex: Female

DRUGS (5)
  1. SPIRIVA [Suspect]
     Dosage: (18 MCG), IH
     Route: 055
     Dates: start: 20040101
  2. FORADIL [Concomitant]
  3. XOPENEX [Concomitant]
  4. .. [Concomitant]
  5. ,, [Concomitant]

REACTIONS (1)
  - FUNGAL INFECTION [None]
